FAERS Safety Report 10915921 (Version 1)
Quarter: 2015Q1

REPORT INFORMATION
  Report Type: Spontaneous
  Country: US (occurrence: US)
  Receive Date: 20150316
  Receipt Date: 20150316
  Transmission Date: 20150721
  Serious: Yes (Death, Other)
  Sender: FDA-Public Use
  Company Number: US-MUNDIPHARMA DS AND PHARMACOVIGILANCE-USA-2015-0121620

PATIENT
  Age: 2 Year
  Sex: Male

DRUGS (1)
  1. BUPRENORPHINE (SIMILAR TO NDA 21-306) [Suspect]
     Active Substance: BUPRENORPHINE
     Indication: PRODUCT USED FOR UNKNOWN INDICATION
     Dosage: UNKNOWN
     Route: 065

REACTIONS (8)
  - Hypoxic-ischaemic encephalopathy [Fatal]
  - Accidental exposure to product [Unknown]
  - Loss of consciousness [Unknown]
  - Malaise [Unknown]
  - Cardio-respiratory arrest [Fatal]
  - Toxicity to various agents [None]
  - Dyspnoea [Unknown]
  - Overdose [Fatal]
